FAERS Safety Report 5460241-1 (Version None)
Quarter: 2007Q3

REPORT INFORMATION
  Report Type: 
  Country: None (occurrence: None)
  Receive Date: 20070919
  Receipt Date: 20070712
  Transmission Date: 20080115
  Serious: Yes (Hospitalization)
  Sender: FDA-Public Use
  Company Number: US-ASTRAZENECA-2007UW13746

PATIENT
  Age: 24 Year
  Sex: Male
  Weight: 75 kg

DRUGS (7)
  1. SEROQUEL [Suspect]
     Indication: MAJOR DEPRESSION
     Route: 048
     Dates: start: 20060101
  2. SEROQUEL [Suspect]
     Indication: BIPOLAR DISORDER
     Route: 048
     Dates: start: 20060101
  3. INSULIN [Concomitant]
  4. DEPAKOTE [Concomitant]
     Dosage: } ONE YEAR
  5. HALDOL [Concomitant]
     Dosage: } ONE YEAR
  6. KLONOPIN [Concomitant]
     Dosage: } ONE YEAR
  7. COGENTIN [Concomitant]
     Dosage: } ONE YEAR

REACTIONS (4)
  - BLOOD CHOLESTEROL INCREASED [None]
  - BLOOD TRIGLYCERIDES INCREASED [None]
  - DIABETIC KETOACIDOSIS [None]
  - WEIGHT INCREASED [None]
